FAERS Safety Report 4874189-4 (Version None)
Quarter: 2006Q1

REPORT INFORMATION
  Report Type: 
  Country: None (occurrence: None)
  Receive Date: 20060106
  Receipt Date: 20051129
  Transmission Date: 20060701
  Serious: Yes (Hospitalization, Other)
  Sender: FDA-Public Use
  Company Number: PHRM2005FR03128

PATIENT
  Age: 70 Year
  Sex: Male
  Weight: 83 kg

DRUGS (2)
  1. GLEEVEC [Suspect]
     Indication: CHRONIC MYELOID LEUKAEMIA
     Dosage: 400 MG, QD
     Route: 048
     Dates: start: 20020701
  2. ELISOR [Suspect]
     Indication: HYPERCHOLESTEROLAEMIA
     Dosage: 0.5 DF, UNK
     Route: 048

REACTIONS (3)
  - MALIGNANT MELANOMA [None]
  - SKIN LESION [None]
  - SKIN NEOPLASM EXCISION [None]
